FAERS Safety Report 22347466 (Version 4)
Quarter: 2023Q2

REPORT INFORMATION
  Report Type: Report from Study
  Country: CH (occurrence: CH)
  Receive Date: 20230521
  Receipt Date: 20230623
  Transmission Date: 20230722
  Serious: Yes (Hospitalization)
  Sender: FDA-Public Use
  Company Number: CH-ABBVIE-4771009

PATIENT
  Age: 78 Year
  Sex: Male
  Weight: 93 kg

DRUGS (7)
  1. VENETOCLAX [Suspect]
     Active Substance: VENETOCLAX
     Indication: Acute myeloid leukaemia
     Route: 048
     Dates: start: 20230509
  2. VENETOCLAX [Suspect]
     Active Substance: VENETOCLAX
     Indication: Acute myeloid leukaemia
     Route: 048
     Dates: start: 20230508, end: 20230508
  3. AZACITIDINE [Suspect]
     Active Substance: AZACITIDINE
     Indication: Acute myeloid leukaemia
     Route: 065
     Dates: start: 20230508, end: 20230512
  4. Allopurinolum (Allopurinol) [Concomitant]
     Indication: Product used for unknown indication
  5. XARELTO [Concomitant]
     Active Substance: RIVAROXABAN
     Indication: Product used for unknown indication
     Route: 048
     Dates: start: 20150101
  6. BISOPROLOLI FUMARAS (2:1) [Concomitant]
     Indication: Product used for unknown indication
     Route: 048
     Dates: start: 20230101
  7. VALACYCLOVIR HYDROCHLORIDE [Concomitant]
     Active Substance: VALACYCLOVIR HYDROCHLORIDE
     Indication: Product used for unknown indication
     Route: 048

REACTIONS (6)
  - Aplasia [Recovered/Resolved]
  - Subclavian vein thrombosis [Recovered/Resolved]
  - Dehydration [Unknown]
  - Gout [Recovered/Resolved]
  - Anaemia [Unknown]
  - Presyncope [Recovered/Resolved]

NARRATIVE: CASE EVENT DATE: 20230515
